FAERS Safety Report 6051600-7 (Version None)
Quarter: 2009Q1

REPORT INFORMATION
  Report Type: 
  Country: None (occurrence: None)
  Receive Date: 20090126
  Receipt Date: 20090113
  Transmission Date: 20090719
  Serious: Yes (Other)
  Sender: FDA-Public Use
  Company Number: GB-MERCK-0901GBR00035

PATIENT
  Age: 77 Year
  Sex: Female
  Weight: 66 kg

DRUGS (19)
  1. FOSAMAX [Suspect]
     Indication: OSTEOPOROSIS
     Route: 048
     Dates: start: 20080601, end: 20081001
  2. FOSAMAX [Suspect]
     Route: 048
     Dates: start: 20081001
  3. AMOXICILLIN [Concomitant]
     Route: 065
  4. CALCIUM CARBONATE [Concomitant]
     Route: 065
  5. CHOLECALCIFEROL [Concomitant]
     Route: 065
  6. DOCUSATE SODIUM [Concomitant]
     Route: 065
  7. FLOXACILLIN [Concomitant]
     Route: 065
  8. FUROSEMIDE [Concomitant]
     Indication: DYSPNOEA
     Route: 065
  9. OMEPRAZOLE [Concomitant]
     Route: 065
  10. MORPHINE SULFATE [Concomitant]
     Route: 048
  11. ACETAMINOPHEN [Concomitant]
     Route: 065
  12. PREDNISOLONE [Concomitant]
     Route: 065
  13. ALBUTEROL [Concomitant]
     Indication: EMPHYSEMA
  14. SENNA [Concomitant]
     Route: 065
  15. FLUTICASONE PROPIONATE AND SALMETEROL XINAFOATE [Concomitant]
     Indication: EMPHYSEMA
  16. SIMVASTATIN [Concomitant]
     Route: 065
  17. TIOTROPIUM BROMIDE [Concomitant]
     Indication: EMPHYSEMA
     Route: 065
  18. TRIMETHOPRIM [Concomitant]
     Route: 065
  19. NICORANDIL [Concomitant]
     Route: 065

REACTIONS (6)
  - DYSPNOEA [None]
  - GASTRITIS [None]
  - HYPERSENSITIVITY [None]
  - LIP SWELLING [None]
  - MOBILITY DECREASED [None]
  - OESOPHAGITIS [None]
